FAERS Safety Report 9827219 (Version 1)
Quarter: 2014Q1

REPORT INFORMATION
  Report Type: Spontaneous
  Country: US (occurrence: US)
  Receive Date: 20140117
  Receipt Date: 20140117
  Transmission Date: 20141002
  Serious: No
  Sender: FDA-Public Use
  Company Number: US-BRISTOL-MYERS SQUIBB COMPANY-19527126

PATIENT
  Age: 69 Year
  Sex: Female
  Weight: 49.89 kg

DRUGS (3)
  1. YERVOY [Suspect]
     Indication: MALIGNANT MELANOMA
     Dates: start: 20131001
  2. LORAZEPAM [Concomitant]
  3. PROCHLORPERAZINE [Concomitant]

REACTIONS (1)
  - Nausea [Unknown]
